FAERS Safety Report 9668449 (Version 2)
Quarter: 2013Q4

REPORT INFORMATION
  Report Type: Report from Study
  Country: DE (occurrence: DE)
  Receive Date: 20131105
  Receipt Date: 20131106
  Transmission Date: 20140711
  Serious: Yes (Other)
  Sender: FDA-Public Use
  Company Number: DE-ROCHE-1296367

PATIENT
  Sex: Male

DRUGS (3)
  1. RANIBIZUMAB [Suspect]
     Indication: AGE-RELATED MACULAR DEGENERATION
     Route: 050
     Dates: start: 20130702
  2. RANIBIZUMAB [Suspect]
     Route: 050
     Dates: start: 20130801
  3. RANIBIZUMAB [Suspect]
     Route: 050
     Dates: start: 20130828

REACTIONS (4)
  - Visual acuity reduced [Unknown]
  - Inappropriate schedule of drug administration [Unknown]
  - Retinal disorder [Unknown]
  - Drug ineffective [Unknown]
